FAERS Safety Report 15023685 (Version 1)
Quarter: 2018Q2

REPORT INFORMATION
  Report Type: Spontaneous
  Country: US (occurrence: US)
  Receive Date: 20180618
  Receipt Date: 20180618
  Transmission Date: 20180711
  Serious: Yes (Hospitalization)
  Sender: FDA-Public Use
  Company Number: US-LANNETT COMPANY, INC.-US-2018LAN000757

PATIENT
  Age: 57 Year
  Sex: Male

DRUGS (1)
  1. DIPHENOXYLATE HCL; ATROPINE SULFATE [Suspect]
     Active Substance: ATROPINE SULFATE\DIPHENOXYLATE HYDROCHLORIDE
     Indication: SALIVARY HYPERSECRETION
     Dosage: 113 MG, UNK
     Route: 060

REACTIONS (3)
  - Anticholinergic syndrome [Recovered/Resolved]
  - Dysarthria [Recovered/Resolved]
  - Delirium [Recovered/Resolved]
